APPROVED DRUG PRODUCT: NICOTINE POLACRILEX
Active Ingredient: NICOTINE POLACRILEX
Strength: EQ 4MG BASE
Dosage Form/Route: GUM, CHEWING;BUCCAL
Application: A214354 | Product #001
Applicant: FERTIN PHARMA AS
Approved: Dec 21, 2022 | RLD: No | RS: No | Type: DISCN